FAERS Safety Report 21403445 (Version 1)
Quarter: 2022Q4

REPORT INFORMATION
  Report Type: Spontaneous
  Country: US (occurrence: None)
  Receive Date: 20221002
  Receipt Date: 20221002
  Transmission Date: 20230113
  Serious: Yes (Other)
  Sender: FDA-Public Use
  Company Number: None

PATIENT
  Age: 7 Year
  Sex: Male
  Weight: 26.1 kg

DRUGS (1)
  1. MONTELUKAST [Suspect]
     Active Substance: MONTELUKAST SODIUM
     Indication: Hypersensitivity
     Dosage: OTHER QUANTITY : 1 TABLET(S);?FREQUENCY : DAILY;?
     Route: 048
     Dates: start: 20220520, end: 20220914

REACTIONS (8)
  - Anxiety [None]
  - Fear [None]
  - Abdominal pain upper [None]
  - Vomiting [None]
  - Epistaxis [None]
  - Diarrhoea [None]
  - Nightmare [None]
  - Panic attack [None]

NARRATIVE: CASE EVENT DATE: 20220822
